FAERS Safety Report 23631890 (Version 1)
Quarter: 2024Q1

REPORT INFORMATION
  Report Type: Report from Study
  Country: US (occurrence: US)
  Receive Date: 20240314
  Receipt Date: 20240314
  Transmission Date: 20240410
  Serious: Yes (Other)
  Sender: FDA-Public Use
  Company Number: US-ABBVIE-5676141

PATIENT
  Age: 46 Year
  Sex: Female

DRUGS (1)
  1. HUMIRA [Suspect]
     Active Substance: ADALIMUMAB
     Indication: Hidradenitis
     Dosage: FORM STRENGTH: 40 MILLIGRAM?CITRATE FREE
     Route: 058
     Dates: end: 202402

REACTIONS (8)
  - Pituitary tumour [Unknown]
  - Blindness [Unknown]
  - Sepsis [Unknown]
  - Endocrine disorder [Unknown]
  - Hypertension [Unknown]
  - Brain neoplasm [Unknown]
  - Hypothalamo-pituitary disorder [Unknown]
  - Cerebral fungal infection [Unknown]

NARRATIVE: CASE EVENT DATE: 20231101
